FAERS Safety Report 8796709 (Version 1)
Quarter: 2012Q4

REPORT INFORMATION
  Report Type: 
  Country: JP (occurrence: US)
  Receive Date: 20120919
  Receipt Date: 20120919
  Transmission Date: 20130627
  Serious: Yes (Other)
  Sender: FDA-Public Use
  Company Number: US-009507513-1209USA003453

PATIENT
  Age: 45 Year
  Sex: Male

DRUGS (12)
  1. ISENTRESS [Suspect]
     Dosage: 2 DF, bid
     Route: 048
  2. MYCOBUTIN [Suspect]
     Dosage: 2 DF, qd
     Route: 048
  3. PYRAMIDE [Concomitant]
     Dosage: 1.2 g, qd
     Route: 048
  4. PYDOXAL [Concomitant]
     Dosage: 1 DF, qd
     Route: 048
  5. ZIDOVUDINE [Concomitant]
  6. FOSAMPRENAVIR CALCIUM [Concomitant]
  7. BAKTAR [Concomitant]
     Dosage: 1 DF, qd
     Route: 048
  8. LENDORMIN [Concomitant]
     Dosage: 1 DF, qd
     Route: 048
  9. TOLEDOMIN [Concomitant]
     Dosage: 1 DF, qd
     Route: 048
  10. EBUTOL [Concomitant]
     Dosage: 3 DF, qd
     Route: 048
  11. ISCOTIN [Concomitant]
     Dosage: 3 DF, qd
     Route: 048
  12. TRUVADA [Concomitant]
     Dosage: 1 DF, qd
     Route: 048

REACTIONS (1)
  - Drug resistance [Unknown]
